FAERS Safety Report 8962848 (Version 1)
Quarter: 2012Q4

REPORT INFORMATION
  Report Type: 
  Country: BE (occurrence: BE)
  Receive Date: 20121213
  Receipt Date: 20121213
  Transmission Date: 20130627
  Serious: Yes (Hospitalization, Other)
  Sender: FDA-Public Use
  Company Number: BE-BAXTER-2012BAX026313

PATIENT
  Age: 65 Year
  Sex: Male

DRUGS (7)
  1. ENDOXAN [Suspect]
     Indication: STEM CELL MOBILIZATION
  2. MELPHALAN [Suspect]
     Indication: BONE MARROW CONDITIONING REGIMEN
  3. ACETYLSALICYLIC ACID [Concomitant]
     Indication: DRUG USE FOR UNKNOWN INDICATION
  4. FOLIC ACID [Concomitant]
     Indication: DRUG USE FOR UNKNOWN INDICATION
  5. OMEPRAZOLE [Concomitant]
     Indication: DRUG USE FOR UNKNOWN INDICATION
  6. PRAVASTATIN [Concomitant]
     Indication: DRUG USE FOR UNKNOWN INDICATION
  7. OXYCODONE [Concomitant]
     Indication: DRUG USE FOR UNKNOWN INDICATION

REACTIONS (4)
  - Herpes zoster [Recovered/Resolved]
  - Lymphopenia [Unknown]
  - Cholangitis [None]
  - Ocular icterus [None]
